FAERS Safety Report 10561013 (Version 1)
Quarter: 2014Q4

REPORT INFORMATION
  Report Type: Spontaneous
  Country: RS (occurrence: RS)
  Receive Date: 20141103
  Receipt Date: 20141103
  Transmission Date: 20150529
  Serious: Yes (Hospitalization)
  Sender: FDA-Public Use
  Company Number: RS-ACTAVIS-2014-23256

PATIENT
  Age: 54 Year
  Sex: Male

DRUGS (4)
  1. BROMAZEPAM (UNKNOWN) [Suspect]
     Active Substance: BROMAZEPAM
     Indication: STRESS AT WORK
     Dosage: 21 MG, SINGLE
     Route: 048
  2. PREGABALIN (UNKNOWN) [Suspect]
     Active Substance: PREGABALIN
     Indication: GENERALISED ANXIETY DISORDER
     Dosage: 4.2 G, SINGLE
     Route: 048
  3. CLOMIPRAMINE (UNKNOWN) [Suspect]
     Active Substance: CLOMIPRAMINE
     Indication: STRESS AT WORK
     Dosage: 125 MG, SINGLE
     Route: 048
  4. PREGABALIN (UNKNOWN) [Suspect]
     Active Substance: PREGABALIN
     Indication: STRESS AT WORK

REACTIONS (3)
  - Toxicity to various agents [Recovered/Resolved]
  - Intentional overdose [Recovered/Resolved]
  - Poisoning deliberate [Recovered/Resolved]
